FAERS Safety Report 25904279 (Version 1)
Quarter: 2025Q4

REPORT INFORMATION
  Report Type: Spontaneous
  Country: IN (occurrence: IN)
  Receive Date: 20251010
  Receipt Date: 20251010
  Transmission Date: 20260118
  Serious: Yes (Hospitalization)
  Sender: SOMERSET THERAPEUTICS, LLC
  Company Number: IN-MIT-25-75-IN-2025-SOM-LIT-00050

PATIENT
  Age: 31 Year
  Sex: Female

DRUGS (4)
  1. BUPIVACAINE HYDROCHLORIDE [Suspect]
     Active Substance: BUPIVACAINE HYDROCHLORIDE
     Indication: Spinal anaesthesia
     Route: 024
  2. BUPRENORPHINE HYDROCHLORIDE [Suspect]
     Active Substance: BUPRENORPHINE HYDROCHLORIDE
     Indication: Spinal anaesthesia
     Route: 024
  3. RL [SODIUM LACTATE] [Concomitant]
     Indication: Product used for unknown indication
     Route: 065
  4. EPHEDRINE [Concomitant]
     Active Substance: EPHEDRINE
     Dosage: A SINGLE DOSE
     Route: 042

REACTIONS (3)
  - Parotitis [Recovering/Resolving]
  - Product use in unapproved indication [Unknown]
  - Maternal exposure during delivery [Unknown]
